FAERS Safety Report 16703405 (Version 1)
Quarter: 2019Q3

REPORT INFORMATION
  Report Type: Other
  Country: US (occurrence: US)
  Receive Date: 20190814
  Receipt Date: 20190814
  Transmission Date: 20191004
  Serious: No
  Sender: FDA-Public Use
  Company Number: US-SAGENT PHARMACEUTICALS-2019SAG000382

PATIENT

DRUGS (6)
  1. HEPARIN SODIUM. [Suspect]
     Active Substance: HEPARIN SODIUM
     Dosage: 1400 UNITS/HR, ONCE
     Route: 042
     Dates: start: 20181025, end: 20181025
  2. HEPARIN SODIUM. [Suspect]
     Active Substance: HEPARIN SODIUM
     Indication: CARDIAC ELECTROPHYSIOLOGIC STUDY
     Dosage: 1000 UNITS/HR, ONCE
     Route: 042
     Dates: start: 20181025, end: 20181025
  3. HEPARIN SODIUM. [Suspect]
     Active Substance: HEPARIN SODIUM
     Dosage: 10000 U, ONCE
     Route: 040
     Dates: start: 20181025, end: 20181025
  4. HEPARIN SODIUM. [Suspect]
     Active Substance: HEPARIN SODIUM
     Dosage: 1200 UNITS/HR, ONCE
     Route: 042
     Dates: start: 20181025, end: 20181025
  5. HEPARIN SODIUM. [Suspect]
     Active Substance: HEPARIN SODIUM
     Dosage: 7000 U, ONCE
     Route: 040
     Dates: start: 20181025, end: 20181025
  6. HEPARIN SODIUM. [Suspect]
     Active Substance: HEPARIN SODIUM
     Dosage: 10000 U, ONCE
     Route: 040
     Dates: start: 20181025, end: 20181025

REACTIONS (1)
  - Drug ineffective [Unknown]

NARRATIVE: CASE EVENT DATE: 20181025
